FAERS Safety Report 10447401 (Version 2)
Quarter: 2014Q3

REPORT INFORMATION
  Report Type: Spontaneous
  Country: US (occurrence: US)
  Receive Date: 20140911
  Receipt Date: 20140911
  Transmission Date: 20150326
  Serious: No
  Sender: FDA-Public Use
  Company Number: US-BEH-2012034260

PATIENT
  Age: 47 Year
  Sex: Female
  Weight: 94 kg

DRUGS (28)
  1. ZEMAIRA [Suspect]
     Active Substance: .ALPHA.1-PROTEINASE INHIBITOR HUMAN
     Indication: ALPHA-1 ANTI-TRYPSIN DEFICIENCY
     Dosage: MAXIMUN RATE 0.008 ML/KG/MIN.
     Route: 042
     Dates: start: 20121213, end: 20121213
  2. BENZONATATE. [Concomitant]
     Active Substance: BENZONATATE
  3. HEPARIN [Concomitant]
     Active Substance: HEPARIN SODIUM
  4. SODIUM CHLORIDE. [Concomitant]
     Active Substance: SODIUM CHLORIDE
  5. MECLIZINE [Concomitant]
     Active Substance: MECLIZINE\MECLIZINE HYDROCHLORIDE
  6. PROAIR HFA [Concomitant]
     Active Substance: ALBUTEROL SULFATE
  7. LIDOCAINE/PRILOCAINE [Concomitant]
  8. HUMALOG [Concomitant]
     Active Substance: INSULIN LISPRO
  9. ACETAMINOPHEN. [Concomitant]
     Active Substance: ACETAMINOPHEN
  10. ALPRAZOLAM. [Concomitant]
     Active Substance: ALPRAZOLAM
  11. NEXIUM [Concomitant]
     Active Substance: ESOMEPRAZOLE MAGNESIUM
  12. SEROQUEL [Concomitant]
     Active Substance: QUETIAPINE FUMARATE
  13. NORMAL SALINE [Concomitant]
     Active Substance: SODIUM CHLORIDE
  14. ZEMAIRA [Suspect]
     Active Substance: .ALPHA.1-PROTEINASE INHIBITOR HUMAN
     Dosage: 956 MG/VIAL
     Route: 042
  15. LANTUS [Concomitant]
     Active Substance: INSULIN GLARGINE
  16. CRESTOR [Concomitant]
     Active Substance: ROSUVASTATIN CALCIUM
  17. OXYGEN. [Concomitant]
     Active Substance: OXYGEN
  18. TRIAMCINOLONE [Concomitant]
     Active Substance: TRIAMCINOLONE
  19. EFFEXOR XR [Concomitant]
     Active Substance: VENLAFAXINE HYDROCHLORIDE
  20. DIPHENHYDRAMINE [Concomitant]
     Active Substance: DIPHENHYDRAMINE
  21. PROMETHAZINE [Concomitant]
     Active Substance: PROMETHAZINE\PROMETHAZINE HYDROCHLORIDE
  22. LISINOPRIL. [Concomitant]
     Active Substance: LISINOPRIL
  23. SPIRIVA [Concomitant]
     Active Substance: TIOTROPIUM BROMIDE MONOHYDRATE
  24. ADVAIR HFA [Concomitant]
     Active Substance: FLUTICASONE PROPIONATE\SALMETEROL XINAFOATE
  25. EPIPEN [Concomitant]
     Active Substance: EPINEPHRINE
     Indication: PREMEDICATION
  26. LYRICA [Concomitant]
     Active Substance: PREGABALIN
  27. SUMATRIPTAN [Concomitant]
     Active Substance: SUMATRIPTAN
  28. ALL OTHER THERAPEUTIC PRODUCTS [Concomitant]
     Active Substance: UNSPECIFIED INGREDIENT

REACTIONS (2)
  - Feeling hot [Recovered/Resolved]
  - Headache [Unknown]

NARRATIVE: CASE EVENT DATE: 20121213
